FAERS Safety Report 7418377-1 (Version None)
Quarter: 2011Q2

REPORT INFORMATION
  Report Type: 
  Country: None (occurrence: None)
  Receive Date: 20110415
  Receipt Date: 20110407
  Transmission Date: 20111010
  Serious: Yes (Other)
  Sender: FDA-Public Use
  Company Number: B0713068A

PATIENT
  Sex: Male

DRUGS (1)
  1. OMACOR [Suspect]
     Route: 048
     Dates: start: 20050101, end: 20110101

REACTIONS (2)
  - CORONARY ARTERY BYPASS [None]
  - HEART VALVE REPLACEMENT [None]
